FAERS Safety Report 7334552-9 (Version None)
Quarter: 2011Q1

REPORT INFORMATION
  Report Type: 
  Country: None (occurrence: None)
  Receive Date: 20110224
  Receipt Date: 20110216
  Transmission Date: 20110831
  Serious: Yes (Hospitalization)
  Sender: FDA-Public Use
  Company Number: 014136

PATIENT
  Sex: Female
  Weight: 95 kg

DRUGS (6)
  1. PREDNISONE TAB [Concomitant]
  2. ARTHROTEC /00372302/ [Concomitant]
  3. VENTOLIN [Concomitant]
  4. CIMZIA [Suspect]
     Indication: RHEUMATOID ARTHRITIS
     Dosage: (200 MG 1X/2 WEEKS SUBCUTANEOUS)
     Route: 058
     Dates: start: 20100506
  5. DIOVAN [Concomitant]
  6. ADVAIR DISKUS 100/50 [Concomitant]

REACTIONS (3)
  - HAEMATOCHEZIA [None]
  - NAUSEA [None]
  - ABDOMINAL PAIN UPPER [None]
